FAERS Safety Report 4367265-6 (Version None)
Quarter: 2004Q2

REPORT INFORMATION
  Report Type: 
  Country: None (occurrence: None)
  Receive Date: 20040524
  Receipt Date: 20040514
  Transmission Date: 20050107
  Serious: Yes (Other)
  Sender: FDA-Public Use
  Company Number: 2004213635US

PATIENT
  Sex: Female

DRUGS (3)
  1. PROVERA [Suspect]
     Indication: HORMONE REPLACEMENT THERAPY
     Dosage: 2.5 MG, QD, ORAL
     Route: 048
     Dates: start: 19950315, end: 19960401
  2. PREMARIN [Suspect]
     Indication: HORMONE REPLACEMENT THERAPY
     Dosage: 0.625 MG, QD, ORAL
     Route: 048
     Dates: start: 19950315, end: 19960401
  3. PREMPRO [Suspect]
     Dates: start: 19960415, end: 20010801

REACTIONS (6)
  - ANXIETY [None]
  - BREAST CANCER [None]
  - DEFORMITY [None]
  - MENTAL DISORDER [None]
  - METASTASES TO LYMPH NODES [None]
  - PAIN [None]
